FAERS Safety Report 24879914 (Version 3)
Quarter: 2025Q4

REPORT INFORMATION
  Report Type: Spontaneous
  Country: EU (occurrence: EU)
  Receive Date: 20250123
  Receipt Date: 20251112
  Transmission Date: 20260117
  Serious: Yes (Hospitalization, Other)
  Sender: MYLAN
  Company Number: EU-NORDICGR-058506

PATIENT
  Age: 35 Year
  Sex: Female

DRUGS (2)
  1. METHOTREXATE [Suspect]
     Active Substance: METHOTREXATE
     Indication: Rheumatoid arthritis
     Dosage: 15 MILLIGRAM, QW (15 MG PER WEEK)
  2. PREDNISOLONE [Suspect]
     Active Substance: PREDNISOLONE
     Indication: Rheumatoid arthritis
     Dosage: 2.5 MILLIGRAM, QD (2.5 MG PER DAY)

REACTIONS (18)
  - Necrosis [Recovered/Resolved]
  - Polyarthritis [Recovered/Resolved with Sequelae]
  - Joint destruction [Recovered/Resolved]
  - Dactylitis [Recovering/Resolving]
  - Joint tuberculosis [Recovering/Resolving]
  - Bone tuberculosis [Recovered/Resolved]
  - Tuberculosis [Recovered/Resolved]
  - Pulmonary toxicity [Unknown]
  - Joint swelling [Recovered/Resolved with Sequelae]
  - Arthritis [Recovered/Resolved]
  - Osteitis [Recovered/Resolved]
  - Synovitis [Recovered/Resolved]
  - Tenosynovitis [Recovered/Resolved]
  - Lymphadenopathy [Recovered/Resolved]
  - Biopsy [Unknown]
  - Drainage [Unknown]
  - Joint range of motion decreased [Recovered/Resolved with Sequelae]
  - Arthralgia [Recovered/Resolved]
